FAERS Safety Report 20423323 (Version 3)
Quarter: 2022Q2

REPORT INFORMATION
  Report Type: Spontaneous
  Country: US (occurrence: US)
  Receive Date: 20220203
  Receipt Date: 20220406
  Transmission Date: 20220721
  Serious: Yes (Disabling)
  Sender: FDA-Public Use
  Company Number: US-SANOFI-00946998

PATIENT
  Age: 84 Year
  Sex: Female

DRUGS (1)
  1. LANTUS SOLOSTAR [Suspect]
     Active Substance: INSULIN GLARGINE
     Indication: Type 1 diabetes mellitus
     Dosage: 20 IU, QD
     Route: 065

REACTIONS (3)
  - Visual impairment [Recovering/Resolving]
  - Feeling abnormal [Unknown]
  - Blood glucose increased [Recovering/Resolving]
